FAERS Safety Report 9313055 (Version 1)
Quarter: 2013Q2

REPORT INFORMATION
  Report Type: Spontaneous
  Country: US (occurrence: US)
  Receive Date: 20130528
  Receipt Date: 20130528
  Transmission Date: 20140414
  Serious: No
  Sender: FDA-Public Use
  Company Number: US-ABBOTT-13P-163-1088420-00

PATIENT
  Age: 55 Year
  Sex: Male
  Weight: 96.7 kg

DRUGS (7)
  1. ANDROGEL [Suspect]
     Indication: BLOOD TESTOSTERONE DECREASED
     Dates: start: 20130430
  2. CELEXA [Suspect]
     Indication: DEPRESSION
     Dates: start: 20130430
  3. LIPITOR [Concomitant]
     Indication: BLOOD CHOLESTEROL INCREASED
  4. ZETIA [Concomitant]
     Indication: BLOOD CHOLESTEROL INCREASED
  5. ISOSORBIDE [Concomitant]
     Indication: CARDIAC DISORDER
  6. ATENOLOL [Concomitant]
     Indication: HYPERTENSION
  7. LISINOPRIL [Concomitant]
     Indication: HYPERTENSION

REACTIONS (2)
  - Hyperhidrosis [Not Recovered/Not Resolved]
  - Local swelling [Not Recovered/Not Resolved]
